FAERS Safety Report 7959700 (Version 2)
Quarter: 2012Q4

REPORT INFORMATION
  Report Type: 
  Country: CA (occurrence: CA)
  Receive Date: 20110525
  Receipt Date: 20121221
  Transmission Date: 20130627
  Serious: Yes (Other)
  Sender: FDA-Public Use
  Company Number: PHHY2011CA40195

PATIENT
  Sex: Female

DRUGS (1)
  1. GLEEVEC [Suspect]
     Indication: CHRONIC MYELOID LEUKAEMIA
     Dosage: 400 mg, daily
     Route: 048
     Dates: start: 200901, end: 200903

REACTIONS (5)
  - Dermatitis exfoliative [Unknown]
  - Skin exfoliation [Unknown]
  - Skin swelling [Unknown]
  - Gastrointestinal disorder [Unknown]
  - Pruritus [Unknown]
